FAERS Safety Report 24653030 (Version 2)
Quarter: 2024Q4

REPORT INFORMATION
  Report Type: Spontaneous
  Country: US (occurrence: US)
  Receive Date: 20241122
  Receipt Date: 20241230
  Transmission Date: 20250115
  Serious: Yes (Hospitalization, Other)
  Sender: MYLAN
  Company Number: US-MYLANLABS-2024M1102324

PATIENT
  Sex: Male

DRUGS (1)
  1. BREYNA [Suspect]
     Active Substance: BUDESONIDE\FORMOTEROL FUMARATE
     Indication: Product used for unknown indication
     Dosage: UNK
     Route: 055

REACTIONS (12)
  - Oxygen saturation decreased [Unknown]
  - Dyspnoea [Unknown]
  - Fatigue [Unknown]
  - Pneumonia [Unknown]
  - Pyrexia [Unknown]
  - Chest discomfort [Unknown]
  - Viral infection [Unknown]
  - Cough [Unknown]
  - Therapeutic response decreased [Unknown]
  - Product substitution issue [Unknown]
  - Incorrect dose administered by device [Unknown]
  - Product quality issue [Unknown]
